FAERS Safety Report 5125966-6 (Version None)
Quarter: 2006Q4

REPORT INFORMATION
  Report Type: 
  Country: None (occurrence: None)
  Receive Date: 20061010
  Receipt Date: 20061010
  Transmission Date: 20070319
  Serious: Yes (Other)
  Sender: FDA-Public Use
  Company Number: None

PATIENT
  Age: 70 Year
  Sex: Female
  Weight: 53.5244 kg

DRUGS (1)
  1. POLYETHYLENE GLYCOL 3350 POWDER FOR SOLUTION [Suspect]
     Indication: CONSTIPATION
     Dosage: MIX AND DRINK AS DIRECTED

REACTIONS (1)
  - PHARMACEUTICAL PRODUCT COMPLAINT [None]
